FAERS Safety Report 4915201-3 (Version None)
Quarter: 2006Q1

REPORT INFORMATION
  Report Type: 
  Country: None (occurrence: None)
  Receive Date: 20060216
  Receipt Date: 20060216
  Transmission Date: 20060701
  Serious: Yes (Hospitalization)
  Sender: FDA-Public Use
  Company Number: None

PATIENT
  Sex: Female
  Weight: 55.3388 kg

DRUGS (5)
  1. PREVPAC [Suspect]
     Dosage: PO PRIOR TO ADMISSION
     Route: 048
  2. MEVACOR [Concomitant]
  3. NORVASC [Concomitant]
  4. IMDUR [Concomitant]
  5. ECOTRIN [Concomitant]

REACTIONS (3)
  - OEDEMA PERIPHERAL [None]
  - RASH [None]
  - SWOLLEN TONGUE [None]
